FAERS Safety Report 6261119-6 (Version None)
Quarter: 2009Q3

REPORT INFORMATION
  Report Type: 
  Country: None (occurrence: None)
  Receive Date: 20090707
  Receipt Date: 20090625
  Transmission Date: 20100115
  Serious: Yes (Hospitalization, Other)
  Sender: FDA-Public Use
  Company Number: 2008AL011582

PATIENT
  Age: 61 Year
  Sex: Female

DRUGS (34)
  1. DIGOXIN [Suspect]
     Dosage: 0.125MG, DAILY, PO
     Route: 048
  2. DIOVAN [Concomitant]
  3. VERAPAMIL [Concomitant]
  4. PRAVACHOL [Concomitant]
  5. ASPIRIN [Concomitant]
  6. ZYRTEC [Concomitant]
  7. NIASPAN [Concomitant]
  8. MULTIVTIAMIN [Concomitant]
  9. FISH OIL [Concomitant]
  10. NEXIUM [Concomitant]
  11. CIPROFLOXACIN [Concomitant]
  12. HYDROCODONE [Concomitant]
  13. PRAVASTATIN [Concomitant]
  14. PLAVIX [Concomitant]
  15. AVELOX [Concomitant]
  16. NEOMYCIN [Concomitant]
  17. METHYLPRENISOL [Concomitant]
  18. XALATAN [Concomitant]
  19. ASTELIN [Concomitant]
  20. NITROGLYCERIN [Concomitant]
  21. ZOLPIDEM [Concomitant]
  22. FLUANOZOLE [Concomitant]
  23. SULFAMETHOXAZO [Concomitant]
  24. AZITHROMYCIN [Concomitant]
  25. TRAVATAN [Concomitant]
  26. GUAIFENEX [Concomitant]
  27. PROAIR HFA [Concomitant]
  28. BIAXIN [Concomitant]
  29. OXYCODONE [Concomitant]
  30. PROTONIX [Concomitant]
  31. ZOCOR [Concomitant]
  32. TRILYTE [Concomitant]
  33. CLARITHROMYCIN [Concomitant]
  34. AZITHROMYCIN [Concomitant]

REACTIONS (14)
  - ANAEMIA [None]
  - ARTERIOSPASM CORONARY [None]
  - EAR PAIN [None]
  - ELECTROCARDIOGRAM T WAVE INVERSION [None]
  - GASTRITIS [None]
  - GASTROINTESTINAL ULCER [None]
  - HYPOACUSIS [None]
  - INFLUENZA [None]
  - INJURY [None]
  - LACRIMATION INCREASED [None]
  - NODAL RHYTHM [None]
  - POSTNASAL DRIP [None]
  - SINUS BRADYCARDIA [None]
  - SINUSITIS [None]
